FAERS Safety Report 7938082-2 (Version None)
Quarter: 2011Q4

REPORT INFORMATION
  Report Type: 
  Country: None (occurrence: None)
  Receive Date: 20111123
  Receipt Date: 20111114
  Transmission Date: 20120403
  Serious: Yes (Hospitalization)
  Sender: FDA-Public Use
  Company Number: US-ASTRAZENECA-2010SE28113

PATIENT
  Age: 55 Year
  Sex: Male
  Weight: 88.5 kg

DRUGS (15)
  1. PLAVIX [Concomitant]
  2. VITAMIN TAB [Concomitant]
  3. AMBIEN [Concomitant]
  4. AMBIEN [Concomitant]
  5. CRESTOR [Suspect]
     Route: 048
  6. SINGULAIR [Concomitant]
  7. ASPIRIN [Concomitant]
  8. ASPIRIN [Concomitant]
  9. CRESTOR [Suspect]
     Route: 048
     Dates: start: 20080101
  10. MAGNESIUM OXIDE [Concomitant]
  11. NITROSTAT [Concomitant]
     Route: 060
  12. FISH OIL [Concomitant]
  13. VITAMIN D [Concomitant]
  14. CLOVASA [Concomitant]
  15. SUPPLEMENTS [Concomitant]

REACTIONS (3)
  - CORONARY ARTERY DISEASE [None]
  - HEADACHE [None]
  - VASCULAR OCCLUSION [None]
